FAERS Safety Report 5257933-6 (Version None)
Quarter: 2007Q1

REPORT INFORMATION
  Report Type: 
  Country: None (occurrence: None)
  Receive Date: 20070307
  Receipt Date: 20061025
  Transmission Date: 20070707
  Serious: Yes (Other)
  Sender: FDA-Public Use
  Company Number: US-GLAXOSMITHKLINE-A0624913A

PATIENT
  Age: 71 Year
  Sex: Female

DRUGS (6)
  1. REQUIP [Suspect]
     Indication: PARKINSON'S DISEASE
     Dosage: 2MG FIVE TIMES PER DAY
     Route: 048
     Dates: start: 20060801
  2. TOPROL-XL [Concomitant]
  3. FLAXSEED OIL [Concomitant]
  4. ASPIRIN [Concomitant]
  5. CALCIUM [Concomitant]
  6. CENTRUM SILVER [Concomitant]

REACTIONS (2)
  - DYSKINESIA [None]
  - HALLUCINATION [None]
